FAERS Safety Report 10256088 (Version 1)
Quarter: 2014Q2

REPORT INFORMATION
  Report Type: Spontaneous
  Country: GB (occurrence: GB)
  Receive Date: 20140624
  Receipt Date: 20140624
  Transmission Date: 20141212
  Serious: Yes (Other)
  Sender: FDA-Public Use
  Company Number: GB-WATSON-2014-13282

PATIENT
  Age: 47 Year
  Sex: Female
  Weight: 71 kg

DRUGS (5)
  1. HYDROXYCHLOROQUINE SULFATE (WATSON LABORATORIES) [Suspect]
     Indication: DERMATOMYOSITIS
     Dosage: 200 MG, BID, INCREASED ON 24/01/2014
     Route: 048
     Dates: start: 20140124, end: 20140410
  2. METHOTREXATE [Suspect]
     Indication: PRODUCT USED FOR UNKNOWN INDICATION
     Dosage: 7.5 MG, 1/WEEK
     Route: 048
     Dates: start: 201202, end: 20140410
  3. FEXOFENADINE [Concomitant]
     Indication: URTICARIA
     Dosage: 180 MG, DAILY
     Route: 048
     Dates: start: 201307
  4. PREDNISOLONE [Concomitant]
     Indication: DERMATOMYOSITIS
     Dosage: 2.5 MG, ALTERNATE DAYS
     Route: 048
     Dates: start: 201211
  5. FOLIC ACID [Concomitant]
     Indication: DERMATOMYOSITIS
     Dosage: 5 MG, 2/WEEK
     Route: 048
     Dates: start: 201202

REACTIONS (4)
  - Bone marrow failure [Recovered/Resolved]
  - Neutropenia [Recovered/Resolved]
  - Lymphopenia [Recovered/Resolved]
  - White blood cell count decreased [Recovered/Resolved]
